FAERS Safety Report 6141349-4 (Version None)
Quarter: 2009Q2

REPORT INFORMATION
  Report Type: 
  Country: None (occurrence: None)
  Receive Date: 20090402
  Receipt Date: 20090323
  Transmission Date: 20091009
  Serious: Yes (Other)
  Sender: FDA-Public Use
  Company Number: IT-ROCHE-623281

PATIENT
  Age: 29 Year
  Sex: Female

DRUGS (3)
  1. CAPECITABINE [Suspect]
     Route: 048
  2. ERLOTINIB [Suspect]
     Dosage: 11 DAYS TREATMENT
     Route: 065
  3. ERLOTINIB [Suspect]
     Route: 065

REACTIONS (5)
  - DIARRHOEA [None]
  - DRUG TOXICITY [None]
  - MALIGNANT NEOPLASM PROGRESSION [None]
  - RASH [None]
  - THYMOMA MALIGNANT [None]
